FAERS Safety Report 8924704 (Version 7)
Quarter: 2015Q4

REPORT INFORMATION
  Report Type: Spontaneous
  Country: US (occurrence: US)
  Receive Date: 20121126
  Receipt Date: 20151124
  Transmission Date: 20160305
  Serious: Yes (Death, Hospitalization, Disabling, Other)
  Sender: FDA-Public Use
  Company Number: US-009507513-1211USA008149

PATIENT
  Sex: Female
  Weight: 67.12 kg

DRUGS (2)
  1. PREDNISONE. [Concomitant]
     Active Substance: PREDNISONE
     Indication: RHEUMATOID ARTHRITIS
     Dosage: UNK, UNKNOWN
     Route: 065
     Dates: start: 1971
  2. FOSAMAX [Suspect]
     Active Substance: ALENDRONATE SODIUM
     Indication: OSTEOPOROSIS
     Dosage: 70 MG, WEEKLY
     Route: 048
     Dates: end: 201205

REACTIONS (38)
  - Brain injury [Fatal]
  - Angiopathy [Unknown]
  - Vitamin D deficiency [Unknown]
  - Back pain [Unknown]
  - Limb operation [Unknown]
  - Toe amputation [Unknown]
  - Low turnover osteopathy [Unknown]
  - Humerus fracture [Unknown]
  - Spinal fusion surgery [Unknown]
  - Type V hyperlipidaemia [Unknown]
  - Peripheral arterial occlusive disease [Unknown]
  - Spinal fusion surgery [Unknown]
  - Cellulitis [Fatal]
  - Respiratory failure [Fatal]
  - Upper limb fracture [Unknown]
  - Haemorrhoids [Unknown]
  - Fall [Unknown]
  - Pneumonia [Fatal]
  - Femur fracture [Unknown]
  - Coronary artery disease [Unknown]
  - Arterial bruit [Unknown]
  - Contusion [Not Recovered/Not Resolved]
  - Arthralgia [Not Recovered/Not Resolved]
  - Multi-organ failure [Fatal]
  - Vascular operation [Unknown]
  - Fall [Unknown]
  - Arthroscopy [Unknown]
  - Dizziness [Unknown]
  - Septic shock [Fatal]
  - Coronary arterial stent insertion [Unknown]
  - Limb operation [Unknown]
  - Osteoporosis [Unknown]
  - Neck surgery [Unknown]
  - Coronary artery bypass [Unknown]
  - Fall [Unknown]
  - Lower limb fracture [Unknown]
  - Cellulitis [Unknown]
  - Cervical spinal stenosis [Unknown]

NARRATIVE: CASE EVENT DATE: 2002
